FAERS Safety Report 6447337-2 (Version None)
Quarter: 2009Q4

REPORT INFORMATION
  Report Type: 
  Country: None (occurrence: None)
  Receive Date: 20091119
  Receipt Date: 20091112
  Transmission Date: 20100525
  Serious: Yes (Hospitalization)
  Sender: FDA-Public Use
  Company Number: GB-ABBOTT-09P-167-0591658-00

PATIENT
  Sex: Female

DRUGS (8)
  1. HUMIRA [Suspect]
     Indication: RHEUMATOID ARTHRITIS
     Route: 058
     Dates: start: 20040906
  2. HUMIRA [Suspect]
     Route: 058
     Dates: start: 20080601
  3. PREDNISOLONE [Interacting]
     Indication: DRUG USE FOR UNKNOWN INDICATION
     Dates: start: 20040630
  4. AMITRIPTYLINE HCL [Concomitant]
     Indication: DRUG USE FOR UNKNOWN INDICATION
     Dates: start: 20040630
  5. CACIT [Concomitant]
     Indication: DRUG USE FOR UNKNOWN INDICATION
     Dates: start: 20040630
  6. METHOTREXATE [Concomitant]
     Indication: DRUG USE FOR UNKNOWN INDICATION
  7. METHOTREXATE [Concomitant]
     Dates: start: 20080601
  8. ANTIBIOTICS [Concomitant]
     Indication: PROPHYLAXIS

REACTIONS (4)
  - ABDOMINAL PAIN [None]
  - DIARRHOEA [None]
  - ENTEROVESICAL FISTULA [None]
  - WEIGHT DECREASED [None]
